FAERS Safety Report 10551010 (Version 2)
Quarter: 2015Q1

REPORT INFORMATION
  Report Type: Report from Study
  Country: CA (occurrence: CA)
  Receive Date: 20141029
  Receipt Date: 20150120
  Transmission Date: 20150720
  Serious: Yes (Hospitalization, Other)
  Sender: FDA-Public Use
  Company Number: CA-AMGEN-CANSL2014082389

PATIENT
  Age: 78 Year
  Sex: Female

DRUGS (2)
  1. VITAMINS                           /00067501/ [Concomitant]
     Active Substance: VITAMINS
     Dosage: UNK
  2. PROLIA [Suspect]
     Active Substance: DENOSUMAB
     Indication: OSTEOPOROSIS POSTMENOPAUSAL
     Dosage: 60 MG/ML, Q6MO
     Route: 058
     Dates: start: 20131113

REACTIONS (4)
  - Large intestinal obstruction [Recovered/Resolved]
  - Bladder disorder [Not Recovered/Not Resolved]
  - Large intestinal haemorrhage [Not Recovered/Not Resolved]
  - Abscess [Recovered/Resolved]

NARRATIVE: CASE EVENT DATE: 2014
